FAERS Safety Report 14527384 (Version 1)
Quarter: 2018Q1

REPORT INFORMATION
  Report Type: Spontaneous
  Country: US (occurrence: US)
  Receive Date: 20180213
  Receipt Date: 20180213
  Transmission Date: 20180509
  Serious: Yes (Hospitalization, Other)
  Sender: FDA-Public Use
  Company Number: US-ELI_LILLY_AND_COMPANY-US201802001070

PATIENT
  Age: 67 Year
  Sex: Female

DRUGS (4)
  1. HUMALOG [Suspect]
     Active Substance: INSULIN LISPRO
     Indication: LATENT AUTOIMMUNE DIABETES IN ADULTS
     Dosage: UNK UNK, UNKNOWN
     Route: 058
     Dates: start: 1998
  2. HUMALOG [Suspect]
     Active Substance: INSULIN LISPRO
     Indication: TYPE 2 DIABETES MELLITUS
     Dosage: 2 UNIT/HR PLUS SLIDING SCALE WITH MEALS, PRN
  3. GLUCOTROL [Suspect]
     Active Substance: GLIPIZIDE
     Indication: PRODUCT USED FOR UNKNOWN INDICATION
     Dosage: UNK UNK, UNKNOWN
     Route: 065
  4. HUMALOG [Suspect]
     Active Substance: INSULIN LISPRO
     Dosage: UNK UNK, UNKNOWN

REACTIONS (26)
  - Cataract [Recovered/Resolved]
  - Eye infection [Recovered/Resolved]
  - Incorrect dose administered [Unknown]
  - Myocardial infarction [Unknown]
  - Radiation injury [Unknown]
  - Ureteric obstruction [Unknown]
  - Visual impairment [Not Recovered/Not Resolved]
  - Drug ineffective [Unknown]
  - Carotid artery occlusion [Unknown]
  - Glycosylated haemoglobin increased [Recovered/Resolved]
  - Blood glucose increased [Unknown]
  - Cerebrovascular accident [Unknown]
  - Sepsis [Unknown]
  - Gait disturbance [Unknown]
  - Rectal cancer [Recovered/Resolved]
  - Intracranial aneurysm [Unknown]
  - Ligament disorder [Not Recovered/Not Resolved]
  - Anal cancer [Recovered/Resolved]
  - Kidney infection [Unknown]
  - Myocardial infarction [Unknown]
  - Radiation menopause [Unknown]
  - Blood glucose increased [Unknown]
  - Arterial occlusive disease [Unknown]
  - Tendon disorder [Not Recovered/Not Resolved]
  - Injury corneal [Unknown]
  - Contusion [Unknown]

NARRATIVE: CASE EVENT DATE: 2008
